FAERS Safety Report 5291748-8 (Version None)
Quarter: 2007Q2

REPORT INFORMATION
  Report Type: 
  Country: None (occurrence: None)
  Receive Date: 20070410
  Receipt Date: 20070329
  Transmission Date: 20071010
  Serious: Yes (Death)
  Sender: FDA-Public Use
  Company Number: ES-ELI_LILLY_AND_COMPANY-ES200704000505

PATIENT
  Sex: Female

DRUGS (2)
  1. GEMCITABINE HCL [Suspect]
     Indication: BREAST CANCER
     Dosage: 1200 MG/M2, UNK
  2. VINORELBINE [Concomitant]
     Indication: BREAST CANCER
     Dosage: 30 MG/KG, UNK

REACTIONS (1)
  - SEPTIC SHOCK [None]
